FAERS Safety Report 8968971 (Version 1)
Quarter: 2012Q4

REPORT INFORMATION
  Report Type: 
  Country: US (occurrence: US)
  Receive Date: 20121218
  Receipt Date: 20121218
  Transmission Date: 20130627
  Serious: Yes (Other)
  Sender: FDA-Public Use
  Company Number: US-BRISTOL-MYERS SQUIBB COMPANY-16329534

PATIENT
  Sex: Male

DRUGS (8)
  1. ABILIFY [Suspect]
     Indication: DEPRESSION
  2. ABILIFY [Suspect]
     Indication: GENERALISED ANXIETY DISORDER
  3. ABILIFY ORAL SOLUTION [Suspect]
     Indication: DEPRESSION
  4. ABILIFY ORAL SOLUTION [Suspect]
     Indication: GENERALISED ANXIETY DISORDER
  5. CYMBALTA [Concomitant]
  6. XANAX [Concomitant]
  7. LAMICTAL [Concomitant]
  8. METFORMIN [Concomitant]
     Indication: APPETITE DISORDER
     Dosage: over a 2 week span

REACTIONS (1)
  - Weight increased [Not Recovered/Not Resolved]
